FAERS Safety Report 5009253-2 (Version None)
Quarter: 2006Q2

REPORT INFORMATION
  Report Type: 
  Country: None (occurrence: None)
  Receive Date: 20060522
  Receipt Date: 20060508
  Transmission Date: 20061013
  Serious: Yes (Death, Hospitalization)
  Sender: FDA-Public Use
  Company Number: B0423969A

PATIENT
  Age: 28 Year
  Sex: Female

DRUGS (5)
  1. ZOVIRAX [Suspect]
     Indication: HERPES SIMPLEX
     Dosage: 10 MG/KG/ SEE DOSAGE TEXT/ INTRAVENO
     Route: 042
  2. AMITRIPTYLINE HCL [Concomitant]
  3. SALBUTAMOL SULPHATE [Concomitant]
  4. METHYLPREDNISOLONE [Concomitant]
  5. VALACICLOVIR HYDROCHLORID [Concomitant]

REACTIONS (17)
  - ACINETOBACTER INFECTION [None]
  - BACTERIAL INFECTION [None]
  - CANDIDA SEPSIS [None]
  - CATHETER RELATED INFECTION [None]
  - DISEASE RECURRENCE [None]
  - DRUG LEVEL DECREASED [None]
  - DRUG RESISTANCE [None]
  - ENTEROCOCCAL INFECTION [None]
  - FUNGAL INFECTION [None]
  - HAEMODIALYSIS [None]
  - HEPATIC NECROSIS [None]
  - HERPES SIMPLEX [None]
  - INTERNATIONAL NORMALISED RATIO INCREASED [None]
  - MULTI-ORGAN FAILURE [None]
  - RESPIRATORY DISTRESS [None]
  - THROMBOCYTOPENIA [None]
  - UPPER GASTROINTESTINAL HAEMORRHAGE [None]
